FAERS Safety Report 8033880-1 (Version None)
Quarter: 2012Q1

REPORT INFORMATION
  Report Type: 
  Country: None (occurrence: None)
  Receive Date: 20120110
  Receipt Date: 20120103
  Transmission Date: 20120608
  Serious: No
  Sender: FDA-Public Use
  Company Number: US-PFIZER INC-2011303602

PATIENT
  Sex: Female
  Weight: 102.4 kg

DRUGS (5)
  1. TRAMADOL [Concomitant]
     Indication: PAIN
     Dosage: 50 MG, 3X/DAY
  2. CELEBREX [Suspect]
     Indication: PAIN
  3. CELEBREX [Suspect]
     Indication: LUMBAR RADICULOPATHY
  4. CELEBREX [Suspect]
     Indication: INFLAMMATION
     Dosage: 200 MG, 1X/DAY
     Route: 048
     Dates: start: 20111208, end: 20111211
  5. CELEBREX [Suspect]
     Indication: OSTEOARTHRITIS
     Dosage: 200 MG, 1X/DAY
     Route: 048
     Dates: start: 20101208, end: 20101210

REACTIONS (3)
  - OROPHARYNGEAL PAIN [None]
  - RASH ERYTHEMATOUS [None]
  - PRURITUS [None]
